FAERS Safety Report 20264378 (Version 2)
Quarter: 2022Q1

REPORT INFORMATION
  Report Type: Spontaneous
  Country: US (occurrence: US)
  Receive Date: 20211231
  Receipt Date: 20220201
  Transmission Date: 20220423
  Serious: No
  Sender: FDA-Public Use
  Company Number: US-BAYER-2021A272532

PATIENT
  Age: 57 Year

DRUGS (2)
  1. MIRALAX [Suspect]
     Active Substance: POLYETHYLENE GLYCOL 3350
     Indication: Constipation
     Dosage: UNK
     Dates: start: 202112, end: 202112
  2. MIRALAX [Suspect]
     Active Substance: POLYETHYLENE GLYCOL 3350
     Indication: Abdominal distension

REACTIONS (1)
  - Abnormal faeces [Recovered/Resolved]

NARRATIVE: CASE EVENT DATE: 20211201
